FAERS Safety Report 17012992 (Version 1)
Quarter: 2019Q4

REPORT INFORMATION
  Report Type: Spontaneous
  Country: US (occurrence: US)
  Receive Date: 20191002
  Receipt Date: 20191002
  Transmission Date: 20200122
  Serious: Yes (Hospitalization)
  Sender: FDA-Public Use
  Company Number: None

PATIENT
  Age: 85 Year
  Sex: Male

DRUGS (1)
  1. SUTENT [Suspect]
     Active Substance: SUNITINIB MALATE
     Route: 048
     Dates: start: 201909

REACTIONS (4)
  - Decreased appetite [None]
  - Pneumonia [None]
  - Product physical issue [None]
  - Weight decreased [None]

NARRATIVE: CASE EVENT DATE: 20190911
